FAERS Safety Report 24943093 (Version 6)
Quarter: 2025Q1

REPORT INFORMATION
  Report Type: Report from Study
  Country: AR (occurrence: AR)
  Receive Date: 20250207
  Receipt Date: 20250228
  Transmission Date: 20250409
  Serious: Yes (Other)
  Sender: JOHNSON AND JOHNSON
  Company Number: AR-JNJFOC-20250189507

PATIENT
  Age: 54 Year
  Sex: Female
  Weight: 89 kg

DRUGS (4)
  1. SIMPONI [Suspect]
     Active Substance: GOLIMUMAB
     Indication: Psoriatic arthropathy
     Dosage: 50.00 MG / 0.50 ML
     Route: 058
     Dates: start: 202402
  2. SIMPONI [Suspect]
     Active Substance: GOLIMUMAB
     Dosage: 50.00 MG / 0.50 ML
     Route: 058
     Dates: start: 202409
  3. METHOTREXATE [Suspect]
     Active Substance: METHOTREXATE
     Indication: Product used for unknown indication
  4. FOLIC ACID [Suspect]
     Active Substance: FOLIC ACID
     Indication: Product used for unknown indication

REACTIONS (5)
  - Psoriatic arthropathy [Unknown]
  - Anxiety [Unknown]
  - Device issue [Unknown]
  - Accidental exposure to product [Unknown]
  - Product dose omission issue [Unknown]

NARRATIVE: CASE EVENT DATE: 20250101
